FAERS Safety Report 8407082-0 (Version None)
Quarter: 2012Q2

REPORT INFORMATION
  Report Type: 
  Country: None (occurrence: None)
  Receive Date: 20120604
  Receipt Date: 20120530
  Transmission Date: 20120825
  Serious: Yes (Death)
  Sender: FDA-Public Use
  Company Number: PT-PFIZER INC-2012129759

PATIENT
  Age: 68 Year
  Sex: Male

DRUGS (1)
  1. SUTENT [Suspect]
     Indication: RENAL CANCER
     Dosage: 50 MG 1X/DAY (2 WEEKS ON, 1 WEEK OFF)
     Route: 048
     Dates: start: 20110101

REACTIONS (2)
  - PULMONARY EMBOLISM [None]
  - CARDIO-RESPIRATORY ARREST [None]
